FAERS Safety Report 25429793 (Version 1)
Quarter: 2025Q2

REPORT INFORMATION
  Report Type: Spontaneous
  Country: CN (occurrence: CN)
  Receive Date: 20250612
  Receipt Date: 20250612
  Transmission Date: 20250716
  Serious: Yes (Life-Threatening)
  Sender: PFIZER
  Company Number: CN-PFIZER INC-PV202500070094

PATIENT
  Age: 33 Year
  Sex: Female

DRUGS (4)
  1. MISOPROSTOL [Suspect]
     Active Substance: MISOPROSTOL
     Indication: Abortion induced
     Route: 048
  2. MIFEPRISTONE [Suspect]
     Active Substance: MIFEPRISTONE
     Indication: Cervical dilatation
     Dosage: TAKEN 3 TIMES, 2 TABLETS EACH TIME
     Route: 048
  3. CARBOPROST METHYL [Suspect]
     Active Substance: CARBOPROST METHYL
     Indication: Cervical dilatation
     Route: 067
  4. CARBOPROST METHYL [Suspect]
     Active Substance: CARBOPROST METHYL
     Indication: Uterine hypotonus

REACTIONS (4)
  - Overdose [Unknown]
  - Uterine rupture [Unknown]
  - Uterine tachysystole [Unknown]
  - Off label use [Unknown]
